FAERS Safety Report 7405664-6 (Version None)
Quarter: 2011Q2

REPORT INFORMATION
  Report Type: 
  Country: None (occurrence: None)
  Receive Date: 20110411
  Receipt Date: 20110331
  Transmission Date: 20111010
  Serious: Yes (Hospitalization, Other)
  Sender: FDA-Public Use
  Company Number: PHHY2009CA42642

PATIENT
  Sex: Female

DRUGS (6)
  1. SANDOSTATIN LAR [Suspect]
     Indication: CARCINOID TUMOUR
     Dosage: 20 MG ONCE A MONTH
     Route: 030
     Dates: start: 20090604, end: 20100118
  2. MORPHINE [Concomitant]
  3. SANDOSTATIN LAR [Suspect]
     Dosage: 20 MG EVERY 4 WEEKS
     Route: 030
  4. SANDOSTATIN LAR [Suspect]
     Dosage: 30 MG EVERY 4 WEEKS
     Route: 030
  5. RADIOTHERAPY [Concomitant]
  6. SANDOSTATIN LAR [Suspect]
     Dosage: 30 MG, QMO
     Route: 030

REACTIONS (16)
  - METASTASES TO SPINE [None]
  - DRUG INEFFECTIVE [None]
  - ABDOMINAL PAIN [None]
  - DECREASED APPETITE [None]
  - MALAISE [None]
  - SALMONELLOSIS [None]
  - BLOOD PRESSURE DIASTOLIC DECREASED [None]
  - HYPERHIDROSIS [None]
  - HUNGER [None]
  - HEART RATE INCREASED [None]
  - BACK PAIN [None]
  - BLOOD PRESSURE SYSTOLIC INCREASED [None]
  - INJECTION SITE PAIN [None]
  - FATIGUE [None]
  - DIARRHOEA [None]
  - NEOPLASM MALIGNANT [None]
